FAERS Safety Report 7053425-2 (Version None)
Quarter: 2010Q4

REPORT INFORMATION
  Report Type: 
  Country: None (occurrence: None)
  Receive Date: 20101013
  Receipt Date: 20101007
  Transmission Date: 20110411
  Serious: Yes (Other)
  Sender: FDA-Public Use
  Company Number: 2010SP049514

PATIENT
  Age: 12 Year
  Weight: 39.4 kg

DRUGS (2)
  1. BETAMETHASONE/DEXCHLORPHENIRAMINE MALEATE (BETAMETHASONE/DECHLORPHENIR [Suspect]
     Indication: PRODUCT USED FOR UNKNOWN INDICATION
  2. HISTABLOCK (CELESTAMINE /00252801/) [Suspect]
     Indication: PRODUCT USED FOR UNKNOWN INDICATION

REACTIONS (1)
  - FAILURE TO THRIVE [None]
